FAERS Safety Report 9814601 (Version 1)
Quarter: 2014Q1

REPORT INFORMATION
  Report Type: Spontaneous
  Country: JP (occurrence: JP)
  Receive Date: 20140113
  Receipt Date: 20140113
  Transmission Date: 20141002
  Serious: Yes (Hospitalization)
  Sender: FDA-Public Use
  Company Number: PHHY2014JP002774

PATIENT
  Age: 72 Year
  Sex: Female

DRUGS (2)
  1. VOLTAREN [Suspect]
     Indication: BACK PAIN
     Dosage: 50 MG, DAILY
     Route: 054
  2. VOLTAREN [Suspect]
     Dosage: 25 MG, DAILY
     Route: 054

REACTIONS (1)
  - Gastric cancer [Unknown]
